FAERS Safety Report 6838009-0 (Version None)
Quarter: 2010Q3

REPORT INFORMATION
  Report Type: 
  Country: None (occurrence: None)
  Receive Date: 20100713
  Receipt Date: 20070430
  Transmission Date: 20110219
  Serious: No
  Sender: FDA-Public Use
  Company Number: US-PFIZER INC-2007035435

PATIENT
  Sex: Male
  Weight: 150 kg

DRUGS (14)
  1. CHANTIX [Suspect]
     Indication: SMOKING CESSATION THERAPY
     Dates: start: 20070301
  2. AMLODIPINE [Concomitant]
  3. IMIPRAMINE [Concomitant]
  4. ATENOLOL [Concomitant]
  5. FEXOFENADINE [Concomitant]
  6. METFORMIN [Concomitant]
  7. PROTONIX [Concomitant]
  8. ATORVASTATIN CALCIUM [Concomitant]
  9. LISINOPRIL [Concomitant]
  10. VITAMIN C [Concomitant]
  11. CALCIUM [Concomitant]
  12. FISH OIL [Concomitant]
  13. ACETYLSALICYLIC ACID [Concomitant]
  14. GLUCOSAMINE [Concomitant]

REACTIONS (1)
  - ABDOMINAL DISCOMFORT [None]
